FAERS Safety Report 10830511 (Version 1)
Quarter: 2015Q1

REPORT INFORMATION
  Report Type: Spontaneous
  Country: FR (occurrence: FR)
  Receive Date: 20150219
  Receipt Date: 20150219
  Transmission Date: 20150721
  Serious: Yes (Hospitalization)
  Sender: FDA-Public Use
  Company Number: FR-PFIZER INC-2015062803

PATIENT
  Age: 83 Year
  Sex: Male

DRUGS (6)
  1. ZYVOXID [Suspect]
     Active Substance: LINEZOLID
     Indication: ENTEROCOCCAL SEPSIS
  2. SEROPLEX [Concomitant]
     Active Substance: ESCITALOPRAM OXALATE
     Indication: PSYCHOTIC DISORDER
  3. LEXOMIL [Concomitant]
     Active Substance: BROMAZEPAM
     Indication: PSYCHOTIC DISORDER
  4. ZYVOXID [Suspect]
     Active Substance: LINEZOLID
     Indication: STAPHYLOCOCCAL SEPSIS
     Dosage: UNK
     Route: 048
     Dates: start: 20150122, end: 20150126
  5. PAROXETINE ARROW [Suspect]
     Active Substance: PAROXETINE\PAROXETINE HYDROCHLORIDE
     Dosage: 5 MG, DAILY
     Route: 048
     Dates: start: 20150108
  6. SOLIAN [Concomitant]
     Active Substance: AMISULPRIDE
     Indication: PSYCHOTIC DISORDER
     Dosage: UNK
     Route: 048

REACTIONS (2)
  - Confusional state [Not Recovered/Not Resolved]
  - Seizure [Recovered/Resolved]

NARRATIVE: CASE EVENT DATE: 201501
